FAERS Safety Report 9285447 (Version 1)
Quarter: 2013Q2

REPORT INFORMATION
  Report Type: Spontaneous
  Country: US (occurrence: US)
  Receive Date: 20130513
  Receipt Date: 20130513
  Transmission Date: 20140414
  Serious: No
  Sender: FDA-Public Use
  Company Number: US-PFIZER INC-2013145335

PATIENT
  Age: 62 Year
  Sex: Female
  Weight: 102 kg

DRUGS (4)
  1. NEURONTIN [Suspect]
     Indication: NERVE INJURY
     Dosage: 300 MG, 1X/DAY
     Dates: start: 201303
  2. CRESTOR [Concomitant]
     Indication: BLOOD CHOLESTEROL INCREASED
     Dosage: 10 MG, 1X/DAY
  3. METOPROLOL [Concomitant]
     Indication: HEART RATE INCREASED
     Dosage: 10 MG, 2X/DAY
  4. VITAMIN D [Concomitant]
     Dosage: UNK, 1X/DAY

REACTIONS (3)
  - Somnolence [Recovered/Resolved]
  - Irritability [Recovered/Resolved]
  - Headache [Recovered/Resolved]
